FAERS Safety Report 9978039 (Version 2)
Quarter: 2014Q1

REPORT INFORMATION
  Report Type: Report from Study
  Country: US (occurrence: US)
  Receive Date: 20140306
  Receipt Date: 20140306
  Transmission Date: 20141002
  Serious: No
  Sender: FDA-Public Use
  Company Number: US-ABBVIE-13P-163-1097150-00

PATIENT
  Age: 71 Year
  Sex: Female

DRUGS (9)
  1. HUMIRA [Suspect]
     Indication: COLITIS ULCERATIVE
     Dates: start: 20130520, end: 20130520
  2. HUMIRA [Suspect]
     Dosage: ON MONDAY
  3. FORTEO [Concomitant]
     Indication: OSTEOPOROSIS
     Route: 058
  4. IMURAN [Concomitant]
     Indication: COLITIS ULCERATIVE
  5. TRIAMTERENE [Concomitant]
     Indication: HYPERTENSION
  6. LEXAPRO [Concomitant]
     Indication: ANXIETY
     Dosage: AT BEDTIME
  7. ANTIHYPERTENSIVES [Concomitant]
     Indication: HYPERTENSION
  8. PROBIOTICS [Concomitant]
     Indication: COLITIS ULCERATIVE
  9. PROBIOTICS [Concomitant]
     Indication: CLOSTRIDIUM DIFFICILE INFECTION

REACTIONS (6)
  - Malaise [Recovering/Resolving]
  - Weight decreased [Recovering/Resolving]
  - Gastrooesophageal reflux disease [Recovering/Resolving]
  - Injection site pain [Recovered/Resolved]
  - Colitis ulcerative [Recovering/Resolving]
  - Drug ineffective [Recovering/Resolving]
